FAERS Safety Report 7552118 (Version 2)
Quarter: 2016Q1

REPORT INFORMATION
  Report Type: Spontaneous
  Country: US (occurrence: US)
  Receive Date: 20100824
  Receipt Date: 20160209
  Transmission Date: 20160526
  Serious: Yes (Hospitalization, Other)
  Sender: FDA-Public Use
  Company Number: US-PFIZER INC-2010063350

PATIENT
  Age: 30 Year
  Sex: Male

DRUGS (4)
  1. CHANTIX [Suspect]
     Active Substance: VARENICLINE TARTRATE
     Indication: SMOKING CESSATION THERAPY
     Dosage: UNK, AS PRESCRIBED AND DIRECTED
     Dates: start: 200706
  2. CHANTIX [Suspect]
     Active Substance: VARENICLINE TARTRATE
     Indication: DRUG WITHDRAWAL SYNDROME
  3. CHANTIX [Suspect]
     Active Substance: VARENICLINE TARTRATE
     Indication: UPPER RESPIRATORY TRACT INFECTION
     Dosage: 1 MG, TABLET PER DAY
     Dates: start: 20080506, end: 20080610
  4. CHANTIX [Suspect]
     Active Substance: VARENICLINE TARTRATE
     Indication: NICOTINE DEPENDENCE

REACTIONS (26)
  - Paranoia [Not Recovered/Not Resolved]
  - Muscle spasms [Not Recovered/Not Resolved]
  - Anxiety [Not Recovered/Not Resolved]
  - Abnormal dreams [Unknown]
  - Agitation [Unknown]
  - Hallucination [Unknown]
  - Fatigue [Unknown]
  - Back pain [Unknown]
  - Sexually inappropriate behaviour [Unknown]
  - Mood altered [Unknown]
  - Depression [Not Recovered/Not Resolved]
  - Suicide attempt [Recovered/Resolved]
  - Sleep disorder [Not Recovered/Not Resolved]
  - Nightmare [Unknown]
  - Sexual abuse [Unknown]
  - Sleep terror [Unknown]
  - General physical health deterioration [Unknown]
  - Personality change [Unknown]
  - Abnormal behaviour [Unknown]
  - Memory impairment [Unknown]
  - Restless legs syndrome [Unknown]
  - Promiscuity [Unknown]
  - Aggression [Unknown]
  - Flashback [Unknown]
  - Insomnia [Unknown]
  - Amnesia [Unknown]

NARRATIVE: CASE EVENT DATE: 2008
